FAERS Safety Report 9815408 (Version 1)
Quarter: 2014Q1

REPORT INFORMATION
  Report Type: Spontaneous
  Country: US (occurrence: US)
  Receive Date: 20140114
  Receipt Date: 20140114
  Transmission Date: 20141002
  Serious: Yes (Other)
  Sender: FDA-Public Use
  Company Number: US-SA-2014SA004742

PATIENT
  Age: 62 Year
  Sex: Male

DRUGS (2)
  1. LANTUS SOLOSTAR [Suspect]
     Indication: TYPE 2 DIABETES MELLITUS
     Dosage: 10 UNITS AND 51 UNITS TWICE DAILY.
     Route: 051
     Dates: start: 2007
  2. SOLOSTAR [Concomitant]
     Dates: start: 2007

REACTIONS (3)
  - Spinal disorder [Not Recovered/Not Resolved]
  - Haematoma [Not Recovered/Not Resolved]
  - Quadriplegia [Not Recovered/Not Resolved]
